FAERS Safety Report 9825157 (Version 1)
Quarter: 2013Q4

REPORT INFORMATION
  Report Type: Spontaneous
  Country: US (occurrence: None)
  Receive Date: 20131028
  Receipt Date: 20131028
  Transmission Date: 20140711
  Serious: Yes (Other)
  Sender: FDA-Public Use
  Company Number: 2013US001126

PATIENT
  Age: 52 Year
  Sex: Female
  Weight: 95 kg

DRUGS (7)
  1. ICLUSIG (PONATINIB) TABLET, 45MG [Suspect]
     Indication: CHRONIC MYELOID LEUKAEMIA
     Dosage: 45 MG, QD, ORAL
     Route: 048
     Dates: start: 20130131
  2. COUMADIN (WARFARIN SODIUM) [Concomitant]
  3. LASIX (FUROSEMIDE) [Concomitant]
  4. CLONIDINE (CLONIDINE HYDROCHLORIDE) [Concomitant]
  5. LISINOPRIL (LISINOPRIL) [Concomitant]
  6. COREG (CARVEDILOL) [Concomitant]
  7. ZOLOFT 9SERTRALINE HYDROCHLORIDE) [Concomitant]

REACTIONS (13)
  - Erythema [None]
  - Skin wrinkling [None]
  - Skin exfoliation [None]
  - Dry skin [None]
  - Rash [None]
  - Nausea [None]
  - Vomiting [None]
  - Pain in extremity [None]
  - Constipation [None]
  - Weight decreased [None]
  - Pain [None]
  - Blood pressure increased [None]
  - Fatigue [None]
